FAERS Safety Report 17413368 (Version 1)
Quarter: 2020Q1

REPORT INFORMATION
  Report Type: Spontaneous
  Country: SI (occurrence: SI)
  Receive Date: 20200213
  Receipt Date: 20200213
  Transmission Date: 20200409
  Serious: Yes (Other)
  Sender: FDA-Public Use
  Company Number: NVSC2020SI036729

PATIENT

DRUGS (3)
  1. EXJADE [Suspect]
     Active Substance: DEFERASIROX
     Dosage: 2 DF, UNKNOWN
     Route: 065
     Dates: start: 201909
  2. EXJADE [Suspect]
     Active Substance: DEFERASIROX
     Dosage: 3 DF, UNKNOWN
     Route: 065
     Dates: start: 201905
  3. EXJADE [Suspect]
     Active Substance: DEFERASIROX
     Indication: MYELODYSPLASTIC SYNDROME
     Dosage: 3 DF, UNKNOWN
     Route: 065
     Dates: start: 201812

REACTIONS (1)
  - Cardiac failure congestive [Unknown]

NARRATIVE: CASE EVENT DATE: 201910
